FAERS Safety Report 7079554-5 (Version None)
Quarter: 2010Q4

REPORT INFORMATION
  Report Type: 
  Country: None (occurrence: None)
  Receive Date: 20101102
  Receipt Date: 20101028
  Transmission Date: 20110411
  Serious: Yes (Other)
  Sender: FDA-Public Use
  Company Number: US-CUBIST-2010S1001599

PATIENT

DRUGS (1)
  1. CUBICIN [Suspect]

REACTIONS (1)
  - CEREBROVASCULAR ACCIDENT [None]
